FAERS Safety Report 4437589-2 (Version None)
Quarter: 2004Q3

REPORT INFORMATION
  Report Type: 
  Country: None (occurrence: None)
  Receive Date: 20040827
  Receipt Date: 20040819
  Transmission Date: 20050211
  Serious: No
  Sender: FDA-Public Use
  Company Number: 2000038592GB

PATIENT
  Age: 63 Year
  Sex: Male
  Weight: 79.6 kg

DRUGS (5)
  1. LINEZOLID (LINEZOLID) SOLUTION, STERILE [Suspect]
     Indication: NOCARDIOSIS
     Dosage: 600 MG, BID, ORAL
     Route: 048
     Dates: start: 20000801, end: 20010115
  2. MINOCYCLINE HCL [Concomitant]
  3. WARFARIN SODIUM [Concomitant]
  4. RANITIDINE [Concomitant]
  5. TRAMADOL HCL [Concomitant]

REACTIONS (13)
  - C-REACTIVE PROTEIN INCREASED [None]
  - CARDIOMEGALY [None]
  - COLOUR BLINDNESS [None]
  - DEHYDRATION [None]
  - HYPERTROPHIC CARDIOMYOPATHY [None]
  - MALAISE [None]
  - NAUSEA [None]
  - OPTIC NEUROPATHY [None]
  - RETINAL HAEMORRHAGE [None]
  - SIDEROBLASTIC ANAEMIA [None]
  - VENTRICULAR DYSFUNCTION [None]
  - VISUAL ACUITY REDUCED [None]
  - VOMITING [None]
